FAERS Safety Report 5029530-9 (Version None)
Quarter: 2006Q2

REPORT INFORMATION
  Report Type: 
  Country: None (occurrence: None)
  Receive Date: 20060620
  Receipt Date: 20060220
  Transmission Date: 20061013
  Serious: No
  Sender: FDA-Public Use
  Company Number: US-GLAXOSMITHKLINE-A0594404A

PATIENT
  Age: 47 Year
  Sex: Male

DRUGS (2)
  1. ZYBAN [Suspect]
     Dosage: 150MG TWICE PER DAY
     Route: 048
     Dates: start: 20060207, end: 20060216
  2. TUMS [Concomitant]

REACTIONS (4)
  - PAIN [None]
  - RASH [None]
  - URTICARIA [None]
  - WHEEZING [None]
